FAERS Safety Report 4474240-X (Version None)
Quarter: 2004Q4

REPORT INFORMATION
  Report Type: 
  Country: None (occurrence: None)
  Receive Date: 20041012
  Receipt Date: 20041004
  Transmission Date: 20050328
  Serious: Yes (Hospitalization)
  Sender: FDA-Public Use
  Company Number: 2004-120427-NL

PATIENT
  Age: 63 Year
  Sex: Male

DRUGS (6)
  1. DANAPAROID SODIUM [Suspect]
     Indication: DEEP VENOUS THROMBOSIS PROPHYLAXIS
     Dosage: 2500 ANTI_XA ONCE
     Route: 041
     Dates: start: 20040823, end: 20040821
  2. SULPERAZON [Concomitant]
  3. FAMOTIDINE [Concomitant]
  4. DOPAMINE HYDROCHLORIDE [Concomitant]
  5. LASIX [Concomitant]
  6. PLASMANATE [Concomitant]

REACTIONS (6)
  - BLOOD BILIRUBIN INCREASED [None]
  - HAEMOGLOBIN DECREASED [None]
  - HYPERBILIRUBINAEMIA [None]
  - PERIPHERAL CIRCULATORY FAILURE [None]
  - POST PROCEDURAL HAEMORRHAGE [None]
  - RENAL IMPAIRMENT [None]
